FAERS Safety Report 6685033-7 (Version None)
Quarter: 2010Q2

REPORT INFORMATION
  Report Type: 
  Country: None (occurrence: None)
  Receive Date: 20100416
  Receipt Date: 20100412
  Transmission Date: 20101027
  Serious: Yes (Other)
  Sender: FDA-Public Use
  Company Number: A0775152A

PATIENT
  Age: 40 Year
  Sex: Female
  Weight: 90.9 kg

DRUGS (1)
  1. AVANDIA [Suspect]
     Indication: DIABETES MELLITUS
     Dosage: 2MG UNKNOWN
     Route: 048

REACTIONS (6)
  - CALCULUS BLADDER [None]
  - CHOLELITHIASIS [None]
  - CONDITION AGGRAVATED [None]
  - GASTRIC DISORDER [None]
  - LIVER DISORDER [None]
  - MYOCARDIAL INFARCTION [None]
